FAERS Safety Report 11114794 (Version 2)
Quarter: 2015Q4

REPORT INFORMATION
  Report Type: Spontaneous
  Country: US (occurrence: US)
  Receive Date: 20150515
  Receipt Date: 20151223
  Transmission Date: 20160304
  Serious: Yes (Other)
  Sender: FDA-Public Use
  Company Number: US-ELI_LILLY_AND_COMPANY-US201505003414

PATIENT

DRUGS (3)
  1. CYMBALTA [Suspect]
     Active Substance: DULOXETINE HYDROCHLORIDE
     Indication: DEPRESSION
     Dosage: 1 DF, UNKNOWN
     Dates: start: 201206, end: 201405
  2. CYMBALTA [Suspect]
     Active Substance: DULOXETINE HYDROCHLORIDE
     Indication: NEURALGIA
  3. CYMBALTA [Suspect]
     Active Substance: DULOXETINE HYDROCHLORIDE
     Indication: ANXIETY

REACTIONS (20)
  - Nightmare [Unknown]
  - Sleep disorder [Unknown]
  - Cough [Unknown]
  - Loss of consciousness [Unknown]
  - Agitation [Unknown]
  - Irritability [Unknown]
  - Dizziness [Unknown]
  - Balance disorder [Unknown]
  - Drug withdrawal syndrome [Unknown]
  - Confusional state [Unknown]
  - Mood swings [Unknown]
  - Vertigo [Unknown]
  - Muscle spasms [Unknown]
  - Hyperhidrosis [Unknown]
  - Nausea [Unknown]
  - Dyspnoea [Unknown]
  - Fatigue [Unknown]
  - Paraesthesia [Unknown]
  - Diarrhoea [Unknown]
  - Amnesia [Unknown]
